FAERS Safety Report 4633280-8 (Version None)
Quarter: 2005Q2

REPORT INFORMATION
  Report Type: 
  Country: None (occurrence: None)
  Receive Date: 20050408
  Receipt Date: 20050331
  Transmission Date: 20051028
  Serious: No
  Sender: FDA-Public Use
  Company Number: 2005PK00525

PATIENT
  Age: 71 Year
  Sex: Male
  Weight: 65 kg

DRUGS (2)
  1. ZOLADEX [Suspect]
     Indication: PROSTATE CANCER METASTATIC
  2. ZOMETA [Suspect]
     Indication: PROSTATE CANCER METASTATIC

REACTIONS (2)
  - OSTEOMYELITIS [None]
  - OSTEONECROSIS [None]
